FAERS Safety Report 8320078-2 (Version None)
Quarter: 2012Q2

REPORT INFORMATION
  Report Type: 
  Country: None (occurrence: None)
  Receive Date: 20120428
  Receipt Date: 20120419
  Transmission Date: 20120825
  Serious: Yes (Hospitalization, Other)
  Sender: FDA-Public Use
  Company Number: JP-VERTEX PHARMACEUTICALS INC.-AE-2012-005897

PATIENT
  Age: 65 Year
  Sex: Male

DRUGS (11)
  1. VITAMEDIN [Concomitant]
     Route: 048
  2. TELAVIC (TELAPREVIR) [Suspect]
     Route: 048
     Dates: start: 20120229, end: 20120410
  3. PEGASYS [Concomitant]
     Indication: HEPATITIS C
     Route: 051
     Dates: start: 20120116, end: 20120414
  4. RIBAVIRIN [Concomitant]
     Route: 048
     Dates: start: 20120222, end: 20120306
  5. PEGASYS [Concomitant]
     Route: 051
     Dates: start: 20120419
  6. LOXOPROFEN [Concomitant]
     Route: 048
     Dates: start: 20120314, end: 20120413
  7. RIBAVIRIN [Concomitant]
     Route: 048
     Dates: start: 20120215, end: 20120221
  8. URSO 250 [Concomitant]
     Route: 048
  9. RIBAVIRIN [Concomitant]
     Indication: HEPATITIS C
     Route: 048
     Dates: start: 20120116, end: 20120214
  10. TELAVIC (TELAPREVIR) [Suspect]
     Indication: HEPATITIS C
     Route: 048
     Dates: start: 20120116, end: 20120228
  11. RIBAVIRIN [Concomitant]
     Route: 048
     Dates: start: 20120307, end: 20120414

REACTIONS (7)
  - STOMATITIS [None]
  - DYSPEPSIA [None]
  - NAUSEA [None]
  - APHTHOUS STOMATITIS [None]
  - HAEMOGLOBIN DECREASED [None]
  - RASH [None]
  - VOMITING [None]
